FAERS Safety Report 14064037 (Version 1)
Quarter: 2017Q4

REPORT INFORMATION
  Report Type: Spontaneous
  Country: FR (occurrence: FR)
  Receive Date: 20171009
  Receipt Date: 20171009
  Transmission Date: 20180321
  Serious: Yes (Hospitalization)
  Sender: FDA-Public Use
  Company Number: FR-B. BRAUN MEDICAL INC.-2029324

PATIENT
  Age: 78 Year
  Sex: Male

DRUGS (2)
  1. CEFOTAXIME [Concomitant]
     Active Substance: CEFOTAXIME SODIUM
     Dates: start: 20151228, end: 20160106
  2. METRONIDAZOLE. [Suspect]
     Active Substance: METRONIDAZOLE
     Indication: PNEUMONIA BACTERIAL
     Dates: start: 20151228, end: 20160106

REACTIONS (2)
  - Condition aggravated [Recovered/Resolved]
  - Neutropenia [Recovered/Resolved]
